FAERS Safety Report 7651713-X (Version None)
Quarter: 2011Q3

REPORT INFORMATION
  Report Type: 
  Country: None (occurrence: None)
  Receive Date: 20110802
  Receipt Date: 20110727
  Transmission Date: 20111222
  Serious: Yes (Hospitalization)
  Sender: FDA-Public Use
  Company Number: US-GILEAD-2011-0039620

PATIENT
  Sex: Female
  Weight: 90.8 kg

DRUGS (16)
  1. LETAIRIS [Suspect]
     Indication: PULMONARY HYPERTENSION
     Route: 048
     Dates: start: 20101022
  2. LASIX [Concomitant]
  3. SYNTHROID [Concomitant]
  4. AMBIEN [Concomitant]
  5. VITAMIN B1 TAB [Concomitant]
  6. LOVASTATIN [Concomitant]
  7. ADVAIR DISKUS 100/50 [Concomitant]
  8. OXYGEN [Concomitant]
  9. FENOFIBRATE [Concomitant]
  10. LISINOPRIL [Concomitant]
  11. ASPIRIN [Concomitant]
  12. MAXZIDE [Concomitant]
  13. FERROUS SULFATE TAB [Concomitant]
  14. ALLOPURINOL [Concomitant]
  15. TOPROL-XL [Concomitant]
  16. ZOLOFT [Concomitant]

REACTIONS (2)
  - ATRIAL FIBRILLATION [None]
  - CARDIAC FAILURE CONGESTIVE [None]
